FAERS Safety Report 23159624 (Version 1)
Quarter: 2023Q4

REPORT INFORMATION
  Report Type: Spontaneous
  Country: CN (occurrence: CN)
  Receive Date: 20231108
  Receipt Date: 20231108
  Transmission Date: 20240109
  Serious: Yes (Hospitalization)
  Sender: FDA-Public Use
  Company Number: CN-ELI_LILLY_AND_COMPANY-CN202311002099

PATIENT
  Age: 45 Year
  Sex: Female
  Weight: 41.4 kg

DRUGS (6)
  1. CYRAMZA [Suspect]
     Active Substance: RAMUCIRUMAB
     Indication: Gastric cancer
     Dosage: 500 MG, SINGLE (AT ONE TIME ONE DAY)
     Route: 041
     Dates: start: 20231002, end: 20231002
  2. PACLITAXEL [Suspect]
     Active Substance: PACLITAXEL
     Indication: Gastric cancer
     Dosage: 130 MG, SINGLE (AT ONE TIME ONE DAY)
     Route: 041
     Dates: start: 20231002, end: 20231002
  3. NIVOLUMAB [Suspect]
     Active Substance: NIVOLUMAB
     Indication: Gastric cancer
     Dosage: 200 MG, SINGLE
     Route: 041
     Dates: start: 20231002, end: 20231002
  4. NIVOLUMAB [Suspect]
     Active Substance: NIVOLUMAB
     Dosage: 40 MG, SINGLE (AT ONE TIME ONE DAY)
     Route: 041
     Dates: start: 20231002, end: 20231002
  5. SODIUM CHLORIDE [Concomitant]
     Active Substance: SODIUM CHLORIDE
     Indication: Medication dilution
     Dosage: 100 ML, SINGLE (AT ONE TIME ONE DAY)
     Route: 041
     Dates: start: 20231002, end: 20231002
  6. SODIUM CHLORIDE [Concomitant]
     Active Substance: SODIUM CHLORIDE
     Dosage: 200 ML, SINGLE (AT ONE TIME ONE DAY)
     Route: 041
     Dates: start: 20231002, end: 20231002

REACTIONS (1)
  - Myelosuppression [Recovering/Resolving]

NARRATIVE: CASE EVENT DATE: 20231018
